FAERS Safety Report 12219106 (Version 1)
Quarter: 2016Q1

REPORT INFORMATION
  Report Type: Spontaneous
  Country: US (occurrence: US)
  Receive Date: 20160329
  Receipt Date: 20160329
  Transmission Date: 20160526
  Serious: Yes (Other)
  Sender: FDA-Public Use
  Company Number: US-BAYER-2016-055872

PATIENT
  Age: 52 Year
  Sex: Female
  Weight: 81.63 kg

DRUGS (7)
  1. JANUVIA [Concomitant]
     Active Substance: SITAGLIPTIN PHOSPHATE
  2. METFORMIN [Concomitant]
     Active Substance: METFORMIN HYDROCHLORIDE
  3. BAYER LOW DOSE [Suspect]
     Active Substance: ASPIRIN
     Indication: FAMILIAL RISK FACTOR
     Dosage: 1 DF, QD WITH FOOD
     Route: 048
     Dates: start: 2001
  4. CENTRUM [MINERALS NOS,VITAMINS NOS] [Concomitant]
  5. BAYER LOW DOSE [Suspect]
     Active Substance: ASPIRIN
     Indication: FAMILIAL RISK FACTOR
  6. VYTORIN [Concomitant]
     Active Substance: EZETIMIBE\SIMVASTATIN
  7. DEXILANT [Concomitant]
     Active Substance: DEXLANSOPRAZOLE

REACTIONS (3)
  - Coeliac disease [Not Recovered/Not Resolved]
  - Product use issue [None]
  - Off label use [None]

NARRATIVE: CASE EVENT DATE: 2001
